FAERS Safety Report 17318705 (Version 1)
Quarter: 2020Q1

REPORT INFORMATION
  Report Type: Report from Study
  Country: CA (occurrence: CA)
  Receive Date: 20200124
  Receipt Date: 20200124
  Transmission Date: 20200409
  Serious: Yes (Hospitalization)
  Sender: FDA-Public Use
  Company Number: CA-HLSUS-2019-CA-001724

PATIENT
  Age: 79 Year
  Sex: Female
  Weight: 86.7 kg

DRUGS (11)
  1. RESTORIL [Concomitant]
     Active Substance: TEMAZEPAM
     Dosage: HS
     Route: 048
  2. QUETIAPINE. [Concomitant]
     Active Substance: QUETIAPINE
     Dosage: HS
     Route: 048
  3. SYNTHROID [Concomitant]
     Active Substance: LEVOTHYROXINE SODIUM
     Dosage: DAILY
     Route: 048
  4. CLOZARIL [Suspect]
     Active Substance: CLOZAPINE
     Indication: SCHIZOPHRENIA
     Dosage: HS, REDUCED FROM 50MG HS
     Route: 048
     Dates: start: 20100422
  5. ZOPICLONE [Concomitant]
     Active Substance: ZOPICLONE
     Dosage: HS
     Route: 048
  6. METFORMIN [Concomitant]
     Active Substance: METFORMIN HYDROCHLORIDE
     Route: 048
  7. FLOVENT [Concomitant]
     Active Substance: FLUTICASONE PROPIONATE
     Dosage: INHALATIONS
     Route: 049
  8. ALBUTEROL. [Concomitant]
     Active Substance: ALBUTEROL
     Dosage: INHALATIONS PRN
     Route: 049
  9. FLUTICASONE. [Concomitant]
     Active Substance: FLUTICASONE
     Dosage: SPRAYS
     Route: 045
  10. VENLAFAXINE [Concomitant]
     Active Substance: VENLAFAXINE HYDROCHLORIDE
     Route: 048
  11. FUROSEMIDE. [Concomitant]
     Active Substance: FUROSEMIDE
     Dosage: DAILY

REACTIONS (3)
  - Cholangitis [Unknown]
  - Escherichia sepsis [Unknown]
  - Cystitis escherichia [Unknown]

NARRATIVE: CASE EVENT DATE: 201912
